FAERS Safety Report 9044672 (Version 1)
Quarter: 2013Q1

REPORT INFORMATION
  Report Type: Spontaneous
  Country: US (occurrence: US)
  Receive Date: 20130130
  Receipt Date: 20130130
  Transmission Date: 20140127
  Serious: No
  Sender: FDA-Public Use
  Company Number: US-ASTRAZENECA-2013SE02054

PATIENT
  Sex: 0

DRUGS (1)
  1. PULMICORT FLEXHALER [Suspect]
     Indication: INFLUENZA
     Dosage: 2 PUFFS, TWO TIMES A DAY
     Route: 055
     Dates: start: 20130102

REACTIONS (2)
  - Malaise [Unknown]
  - Off label use [Unknown]
